FAERS Safety Report 8965753 (Version 1)
Quarter: 2012Q4

REPORT INFORMATION
  Report Type: Spontaneous
  Country: JP (occurrence: None)
  Receive Date: 20121206
  Receipt Date: 20121206
  Transmission Date: 20130627
  Serious: Yes (Hospitalization)
  Sender: FDA-Public Use
  Company Number: B0849866A

PATIENT
  Age: 25 Year
  Sex: Female
  Weight: 85.1 kg

DRUGS (1)
  1. LAMIVUDINE [Suspect]
     Indication: CHRONIC HEPATITIS  B

REACTIONS (3)
  - Drug resistance [None]
  - Anaemia [None]
  - Glomerulonephritis membranous [None]
